FAERS Safety Report 4943369-1 (Version None)
Quarter: 2006Q1

REPORT INFORMATION
  Report Type: 
  Country: None (occurrence: None)
  Receive Date: 20060314
  Receipt Date: 20060306
  Transmission Date: 20060701
  Serious: Yes (Death)
  Sender: FDA-Public Use
  Company Number: TH-AVENTIS-200611447EU

PATIENT
  Sex: Female

DRUGS (5)
  1. ENOXAPARIN SODIUM [Suspect]
     Route: 058
  2. ISORDIL [Suspect]
     Indication: CORONARY ARTERY DISEASE
     Route: 048
  3. ENALAPRIL MALEATE [Suspect]
     Indication: HYPERTENSION
     Route: 048
  4. ASPIRIN [Suspect]
     Indication: CORONARY ARTERY DISEASE
     Route: 048
  5. METHYLDOPA [Suspect]
     Indication: HYPERTENSION
     Route: 048

REACTIONS (1)
  - DEATH [None]
